FAERS Safety Report 8276185-6 (Version None)
Quarter: 2012Q2

REPORT INFORMATION
  Report Type: 
  Country: None (occurrence: None)
  Receive Date: 20120405
  Receipt Date: 20120320
  Transmission Date: 20120825
  Serious: Yes (Disabling, Other)
  Sender: FDA-Public Use
  Company Number: DSA_48111_2011

PATIENT
  Age: 78 Year
  Sex: Female

DRUGS (4)
  1. DURAGESIC-12 [Suspect]
     Indication: SPINAL OSTEOARTHRITIS
     Dosage: (50 UG, VIA TRANSDERMAL DELIVERY SYSTEM; DAILY DOSE UNKNOWN TRANSDERMAL)
     Route: 062
     Dates: start: 20040901, end: 20051001
  2. DIPYRONE (SOLN- DIPYRONE) [Suspect]
     Indication: MYELOPATHY
     Dosage: (20 DRPS/PRN)
     Dates: start: 20050601, end: 20070501
  3. DIPYRONE (SOLN- DIPYRONE) [Suspect]
     Indication: PAIN
     Dosage: (20 DRPS/PRN)
     Dates: start: 20050601, end: 20070501
  4. ENALAPRIL MALEATE [Suspect]
     Indication: HYPERTENSION
     Dosage: (5 MG QD)
     Dates: start: 20030101, end: 20080701

REACTIONS (3)
  - DEMENTIA [None]
  - SPINAL OSTEOARTHRITIS [None]
  - MYELOPATHY [None]
